FAERS Safety Report 21583997 (Version 1)
Quarter: 2022Q4

REPORT INFORMATION
  Report Type: Spontaneous
  Country: DE (occurrence: DE)
  Receive Date: 20221111
  Receipt Date: 20221111
  Transmission Date: 20230112
  Serious: Yes (Death, Life-Threatening, Other)
  Sender: FDA-Public Use
  Company Number: DE-drreddys-LIT/GER/22/0157094

PATIENT
  Age: 71 Year
  Sex: Male

DRUGS (4)
  1. LEVETIRACETAM [Suspect]
     Active Substance: LEVETIRACETAM
     Indication: Posterior reversible encephalopathy syndrome
  2. LACOSAMIDE [Suspect]
     Active Substance: LACOSAMIDE
     Indication: Posterior reversible encephalopathy syndrome
  3. VALPROIC ACID [Suspect]
     Active Substance: VALPROIC ACID
     Indication: Posterior reversible encephalopathy syndrome
  4. URAPIDIL [Suspect]
     Active Substance: URAPIDIL
     Indication: Posterior reversible encephalopathy syndrome

REACTIONS (3)
  - Posterior reversible encephalopathy syndrome [Fatal]
  - Drug ineffective for unapproved indication [Unknown]
  - Disease progression [Unknown]
